FAERS Safety Report 9188757 (Version 1)
Quarter: 2013Q1

REPORT INFORMATION
  Report Type: Spontaneous
  Country: NL (occurrence: NL)
  Receive Date: 20130326
  Receipt Date: 20130326
  Transmission Date: 20140127
  Serious: Yes (Death, Hospitalization, Other)
  Sender: FDA-Public Use
  Company Number: NL-ASTRAZENECA-2013SE18976

PATIENT
  Age: 59 Year
  Sex: Male
  Weight: 78 kg

DRUGS (3)
  1. CRESTOR [Suspect]
     Indication: CARDIOVASCULAR DISORDER
     Route: 048
     Dates: start: 20120101
  2. MICARDIS [Interacting]
     Indication: HYPERTENSION
     Route: 048
     Dates: start: 20120101
  3. OMNIC OCAS [Interacting]
     Route: 048
     Dates: start: 20120101

REACTIONS (4)
  - Drug interaction [Unknown]
  - Aortic dissection [Fatal]
  - Post procedural complication [Fatal]
  - Peripheral artery thrombosis [Unknown]
